FAERS Safety Report 4901141-2 (Version None)
Quarter: 2006Q1

REPORT INFORMATION
  Report Type: 
  Country: None (occurrence: None)
  Receive Date: 20060201
  Receipt Date: 20060118
  Transmission Date: 20060701
  Serious: Yes (Other)
  Sender: FDA-Public Use
  Company Number: 221257

PATIENT
  Age: 55 Year
  Sex: Male

DRUGS (3)
  1. RAPTIVA [Suspect]
     Indication: PSORIASIS
     Dosage: 1 ML, SUBCUTANEOUS
     Route: 058
     Dates: start: 20051205
  2. DOVONEX CREAM               (CALCIPOTRIENE) [Concomitant]
  3. ULTRAVATE CREAM              (HALOBETASOL PROPIONATE) [Concomitant]

REACTIONS (1)
  - DEEP VEIN THROMBOSIS [None]
